FAERS Safety Report 21322165 (Version 2)
Quarter: 2022Q4

REPORT INFORMATION
  Report Type: Spontaneous
  Country: US (occurrence: US)
  Receive Date: 20220912
  Receipt Date: 20221102
  Transmission Date: 20230112
  Serious: Yes (Other)
  Sender: FDA-Public Use
  Company Number: US-JNJFOC-20220914841

PATIENT
  Age: 52 Year
  Sex: Female

DRUGS (27)
  1. ELMIRON [Suspect]
     Active Substance: PENTOSAN POLYSULFATE SODIUM
     Indication: Cystitis interstitial
     Dosage: 100 MG ONCE A DAY AND 200 MG ONCE A DAY
     Route: 048
     Dates: start: 200101, end: 2004
  2. ELMIRON [Suspect]
     Active Substance: PENTOSAN POLYSULFATE SODIUM
     Dosage: 100 MG ONCE A DAY AND 200 MG ONCE A DAY
     Route: 048
     Dates: start: 20040609, end: 2004
  3. ELMIRON [Suspect]
     Active Substance: PENTOSAN POLYSULFATE SODIUM
     Route: 048
     Dates: start: 201401
  4. ELMIRON [Suspect]
     Active Substance: PENTOSAN POLYSULFATE SODIUM
     Dosage: 100 MG THRICE A DAY
     Route: 048
     Dates: start: 20150723
  5. ELMIRON [Suspect]
     Active Substance: PENTOSAN POLYSULFATE SODIUM
     Dosage: 100 MG ONCE A DAY AND 200 MG ONCE A DAY
     Route: 048
     Dates: start: 2019
  6. ELMIRON [Suspect]
     Active Substance: PENTOSAN POLYSULFATE SODIUM
     Dosage: 100 MG ONCE A DAY AND 200 MG ONCE A DAY
     Route: 048
     Dates: end: 20200920
  7. ELMIRON [Suspect]
     Active Substance: PENTOSAN POLYSULFATE SODIUM
     Dosage: 100 MG THRICE A DAY
     Route: 048
     Dates: end: 20200924
  8. ELMIRON [Suspect]
     Active Substance: PENTOSAN POLYSULFATE SODIUM
     Route: 048
     Dates: end: 202012
  9. ELMIRON [Suspect]
     Active Substance: PENTOSAN POLYSULFATE SODIUM
     Dosage: 100 MG ONCE A DAY AND 200 MG ONCE A DAY
     Route: 048
     Dates: end: 2020
  10. CELECOXIB [Concomitant]
     Active Substance: CELECOXIB
     Indication: Antiinflammatory therapy
     Dates: start: 201502, end: 202110
  11. CEVIMELINE HYDROCHLORIDE [Concomitant]
     Active Substance: CEVIMELINE HYDROCHLORIDE
     Indication: Sjogren^s syndrome
     Dates: start: 201404, end: 202009
  12. TRIAMCINOLONE ACETONIDE [Concomitant]
     Active Substance: TRIAMCINOLONE ACETONIDE
     Indication: Discomfort
     Dates: start: 201408, end: 201512
  13. DEXILANT [Concomitant]
     Active Substance: DEXLANSOPRAZOLE
     Indication: Gastrooesophageal reflux disease
     Dates: start: 201402, end: 202109
  14. DULOXETINE HYDROCHLORIDE [Concomitant]
     Active Substance: DULOXETINE HYDROCHLORIDE
     Indication: Anxiety
     Dates: start: 201404, end: 202111
  15. ENABLEX [Concomitant]
     Active Substance: DARIFENACIN HYDROBROMIDE
     Indication: Bladder spasm
     Dates: start: 201409, end: 201601
  16. LEVOTHYROXINE SODIUM [Concomitant]
     Active Substance: LEVOTHYROXINE SODIUM
     Indication: Hypothyroidism
     Dates: start: 201404, end: 202108
  17. LYRICA [Concomitant]
     Active Substance: PREGABALIN
     Indication: Neuralgia
     Dates: start: 201312, end: 201912
  18. METHADONE HYDROCHLORIDE [Concomitant]
     Active Substance: METHADONE HYDROCHLORIDE
     Indication: Pain
     Dates: start: 201312, end: 201710
  19. MODAFINIL [Concomitant]
     Active Substance: MODAFINIL
     Indication: Sleep disorder
     Dates: start: 201407, end: 201703
  20. MONTELUKAST SODIUM [Concomitant]
     Active Substance: MONTELUKAST SODIUM
     Indication: Asthma
     Dates: start: 201404, end: 202111
  21. ONDANSETRON [Concomitant]
     Active Substance: ONDANSETRON
     Indication: Nausea
     Dates: start: 201505, end: 202110
  22. ONDANSETRON [Concomitant]
     Active Substance: ONDANSETRON
     Indication: Vomiting
  23. RESTASIS [Concomitant]
     Active Substance: CYCLOSPORINE
     Indication: Rheumatoid arthritis
     Dates: start: 201402, end: 201911
  24. RESTASIS [Concomitant]
     Active Substance: CYCLOSPORINE
     Indication: Psoriasis
  25. RANITIDINE HYDROCHLORIDE [Concomitant]
     Active Substance: RANITIDINE HYDROCHLORIDE
     Indication: Gastrointestinal ulcer
     Dates: start: 201402, end: 201909
  26. OXYBUTYNIN CHLORIDE [Concomitant]
     Active Substance: OXYBUTYNIN CHLORIDE
     Indication: Hypertonic bladder
     Dates: start: 201505, end: 202105
  27. PROAIR HFA [Concomitant]
     Active Substance: ALBUTEROL SULFATE
     Indication: Bronchospasm
     Dates: start: 201405, end: 201912

REACTIONS (5)
  - Age-related macular degeneration [Not Recovered/Not Resolved]
  - Retinal degeneration [Unknown]
  - Retinal pigmentation [Unknown]
  - Depression [Not Recovered/Not Resolved]
  - Off label use [Unknown]

NARRATIVE: CASE EVENT DATE: 20010101
